FAERS Safety Report 18569806 (Version 1)
Quarter: 2020Q4

REPORT INFORMATION
  Report Type: Spontaneous
  Country: GB (occurrence: GB)
  Receive Date: 20201202
  Receipt Date: 20201202
  Transmission Date: 20210114
  Serious: Yes (Life-Threatening, Hospitalization, Disabling, Other)
  Sender: FDA-Public Use
  Company Number: GB-TEVA-2020-GB-1854098

PATIENT
  Age: 87 Year
  Sex: Female
  Weight: 57.15 kg

DRUGS (1)
  1. NITROFURANTOIN. [Suspect]
     Active Substance: NITROFURANTOIN
     Indication: URINARY TRACT INFECTION
     Dosage: 50 MG
     Route: 048

REACTIONS (7)
  - Dyspnoea [Unknown]
  - Fatigue [Unknown]
  - Pulmonary fibrosis [Unknown]
  - Ageusia [Unknown]
  - Dry mouth [Recovered/Resolved with Sequelae]
  - Transient ischaemic attack [Unknown]
  - Dizziness [Unknown]

NARRATIVE: CASE EVENT DATE: 20170101
